FAERS Safety Report 7264913-8 (Version None)
Quarter: 2011Q1

REPORT INFORMATION
  Report Type: 
  Country: None (occurrence: None)
  Receive Date: 20110131
  Receipt Date: 20110126
  Transmission Date: 20110831
  Serious: Yes (Other)
  Sender: FDA-Public Use
  Company Number: DE-ABBOTT-11P-062-0696921-00

PATIENT
  Age: 52 Year
  Sex: Male

DRUGS (3)
  1. ARANESP [Concomitant]
     Indication: PRODUCT USED FOR UNKNOWN INDICATION
     Dosage: 80
     Dates: end: 20091012
  2. ARANESP [Concomitant]
     Dosage: 60
     Dates: start: 20091212
  3. ZEMPLAR [Suspect]
     Indication: HYPERPARATHYROIDISM SECONDARY
     Dates: end: 20091117

REACTIONS (2)
  - HAEMATOMA [None]
  - RIB FRACTURE [None]
